FAERS Safety Report 7403090-7 (Version None)
Quarter: 2011Q1

REPORT INFORMATION
  Report Type: 
  Country: None (occurrence: None)
  Receive Date: 20110331
  Receipt Date: 20110324
  Transmission Date: 20110831
  Serious: Yes (Hospitalization)
  Sender: FDA-Public Use
  Company Number: 2010US002746

PATIENT
  Age: 51 Year
  Sex: Male

DRUGS (12)
  1. K-PHOS NEUTRAL (POTASSIUM PHOSOHATE MONOBASIC, SODIUM PHOSPHATE DIBASI [Concomitant]
  2. GLIPIZIDE ER (GLIPIZIDE ER) [Concomitant]
  3. CELLCEPT [Concomitant]
  4. INSULIN NPH (INSULIN ISOPHANE BOVINE) [Concomitant]
  5. PEPCID [Concomitant]
  6. ASPIRIN [Concomitant]
  7. CALCIUM +D (CALCIUM, ERGOCALIFEROL) [Concomitant]
  8. PROGRAF [Suspect]
     Indication: RENAL TRANSPLANT
     Dosage: 1.5 MG, BID, ORAL
     Route: 048
     Dates: start: 20091215
  9. PREDNISONE [Concomitant]
  10. INSULIN NPH (INSULIN ISOPHANE BOVINE) [Concomitant]
  11. EPIVR (LAMIVUDINE) [Concomitant]
  12. COREG [Concomitant]

REACTIONS (2)
  - HYPERGLYCAEMIA [None]
  - RENAL INJURY [None]
